FAERS Safety Report 9302293 (Version 1)
Quarter: 2013Q2

REPORT INFORMATION
  Report Type: Spontaneous
  Country: US (occurrence: US)
  Receive Date: 20130522
  Receipt Date: 20130522
  Transmission Date: 20140414
  Serious: No
  Sender: FDA-Public Use
  Company Number: US-009507513-1305USA004499

PATIENT
  Age: 26 Year
  Sex: Female

DRUGS (3)
  1. IMPLANON [Suspect]
     Indication: CONTRACEPTION
     Dosage: 1 ROD FOR 3 YEARS
     Route: 059
     Dates: start: 20130315
  2. SUBOXONE [Concomitant]
     Indication: DRUG DEPENDENCE
  3. ADDERALL TABLETS [Concomitant]
     Indication: ADVERSE EVENT

REACTIONS (1)
  - Metrorrhagia [Unknown]
